FAERS Safety Report 16598864 (Version 2)
Quarter: 2019Q4

REPORT INFORMATION
  Report Type: Spontaneous
  Country: US (occurrence: US)
  Receive Date: 20190719
  Receipt Date: 20191114
  Transmission Date: 20200122
  Serious: No
  Sender: FDA-Public Use
  Company Number: US-SA-2019SA194928

PATIENT
  Age: 76 Year
  Sex: Male

DRUGS (1)
  1. PRALUENT [Suspect]
     Active Substance: ALIROCUMAB
     Indication: HYPERCHOLESTEROLAEMIA
     Dosage: 1 ML, QOW
     Route: 058
     Dates: start: 20190327

REACTIONS (3)
  - Arthralgia [Unknown]
  - Product storage error [Unknown]
  - Dizziness [Unknown]

NARRATIVE: CASE EVENT DATE: 20190712
